FAERS Safety Report 8204899-2 (Version None)
Quarter: 2012Q1

REPORT INFORMATION
  Report Type: 
  Country: None (occurrence: None)
  Receive Date: 20120309
  Receipt Date: 20120305
  Transmission Date: 20120608
  Serious: Yes (Other)
  Sender: FDA-Public Use
  Company Number: FR-SEPTODONT-201200420

PATIENT
  Age: 81 Year
  Sex: Female

DRUGS (2)
  1. SEPTOCAINE [Suspect]
     Indication: LOCAL ANAESTHESIA
     Dosage: DENTAL
     Route: 004
     Dates: start: 20120217
  2. CRESTOR [Concomitant]

REACTIONS (7)
  - VOCAL CORD PARALYSIS [None]
  - HYPOAESTHESIA [None]
  - BRONCHOSPASM [None]
  - DYSGEUSIA [None]
  - EXOPHTHALMOS [None]
  - DYSPHAGIA [None]
  - DYSPNOEA [None]
